FAERS Safety Report 13343719 (Version 1)
Quarter: 2017Q1

REPORT INFORMATION
  Report Type: Spontaneous
  Country: US (occurrence: US)
  Receive Date: 20170316
  Receipt Date: 20170316
  Transmission Date: 20170428
  Serious: No
  Sender: FDA-Public Use
  Company Number: US-TAIHO ONCOLOGY INC-EU-2017-00460

PATIENT
  Age: 67 Year
  Sex: Male

DRUGS (1)
  1. LONSURF [Suspect]
     Active Substance: TIPIRACIL HYDROCHLORIDE\TRIFLURIDINE
     Indication: COLON CANCER
     Route: 048
     Dates: start: 20161216, end: 20170302

REACTIONS (7)
  - Abdominal pain upper [Unknown]
  - Decreased appetite [Unknown]
  - Bedridden [Unknown]
  - Dysgeusia [Unknown]
  - Back pain [Unknown]
  - White blood cell count decreased [Unknown]
  - Chest pain [Unknown]

NARRATIVE: CASE EVENT DATE: 20161220
